FAERS Safety Report 16550849 (Version 1)
Quarter: 2019Q3

REPORT INFORMATION
  Report Type: Spontaneous
  Country: DE (occurrence: DE)
  Receive Date: 20190710
  Receipt Date: 20190710
  Transmission Date: 20191004
  Serious: Yes (Life-Threatening, Hospitalization)
  Sender: FDA-Public Use
  Company Number: DE-TEVA-2019-DE-1075030

PATIENT
  Age: 75 Year
  Sex: Female
  Weight: 59 kg

DRUGS (8)
  1. RITUXIMAB. [Suspect]
     Active Substance: RITUXIMAB
     Dosage: 1 G, SCHEME, SOLUTION FOR INJECTION/INFUSION
     Route: 042
  2. VIGANTOLETTEN 1000I.E. [Concomitant]
     Dosage: 1000 IE, 1-0-0-0, TABLETS
     Route: 048
  3. PREDNISOLON [Suspect]
     Active Substance: PREDNISOLONE
     Dosage: 5 MG, 1-0-0-0, TABLET
     Route: 048
  4. PANTOPRAZOL [Concomitant]
     Active Substance: PANTOPRAZOLE SODIUM
     Dosage: 20 MG, 1-0-0-0, TABLETS
     Route: 048
  5. TARGIN 5MG/2,5MG [Concomitant]
     Dosage: 5|2.5 MG, 1-0-1-1, PROLONGED-RELEASE TABLETS
     Route: 048
  6. NOVALGIN (METAMIZOLE SODIUM) [Concomitant]
     Active Substance: METAMIZOLE SODIUM
     Dosage: 20 GTT, 1-0-1-0, DROPS
     Route: 048
  7. SIMVASTATIN. [Concomitant]
     Active Substance: SIMVASTATIN
     Dosage: 20 MG, 0-0-1-0, TABLETS
     Route: 048
  8. AMINEURIN [Concomitant]
     Active Substance: AMITRIPTYLINE HYDROCHLORIDE
     Dosage: 10 MG, 0-0-1-0, TABLETS
     Route: 048

REACTIONS (8)
  - Tachycardia [Unknown]
  - Chest pain [Unknown]
  - Angina pectoris [Unknown]
  - Localised infection [Unknown]
  - Atrial fibrillation [Unknown]
  - Pyrexia [Unknown]
  - Hypotension [Unknown]
  - Decreased appetite [Unknown]
